FAERS Safety Report 24275896 (Version 2)
Quarter: 2025Q1

REPORT INFORMATION
  Report Type: Spontaneous
  Country: IT (occurrence: IT)
  Receive Date: 20240903
  Receipt Date: 20250103
  Transmission Date: 20250409
  Serious: Yes (Other)
  Sender: AUROBINDO
  Company Number: IT-MYLANLABS-2024M1076250

PATIENT
  Age: 57 Year
  Sex: Male

DRUGS (2)
  1. RISPERIDONE [Suspect]
     Active Substance: RISPERIDONE
     Indication: Antipsychotic therapy
     Dosage: 6 MILLIGRAM, ONCE A DAY QD (6 MG/DAY)
     Route: 048
  2. CLOZAPINE [Suspect]
     Active Substance: CLOZAPINE
     Indication: Antipsychotic therapy
     Route: 065

REACTIONS (4)
  - Delirium [Unknown]
  - Hallucination, auditory [Unknown]
  - Hallucination [Unknown]
  - Drug ineffective [Unknown]
